FAERS Safety Report 6426713-8 (Version None)
Quarter: 2009Q4

REPORT INFORMATION
  Report Type: 
  Country: None (occurrence: None)
  Receive Date: 20091104
  Receipt Date: 20091029
  Transmission Date: 20100525
  Serious: Yes (Other)
  Sender: FDA-Public Use
  Company Number: US-ELI_LILLY_AND_COMPANY-US200910007581

PATIENT
  Sex: Female

DRUGS (5)
  1. HUMULIN N [Suspect]
  2. HUMULIN N [Suspect]
     Dosage: UNK, UNKNOWN
  3. SYNTHROID [Concomitant]
     Dosage: 125 MG, DAILY (1/D)
  4. DIOVAN [Concomitant]
     Dosage: 160 MG, 2/D
  5. TEKTURNA /01763601/ [Concomitant]
     Dosage: 150 MG, DAILY (1/D)

REACTIONS (1)
  - BREAST CANCER IN SITU [None]
